FAERS Safety Report 7514012-2 (Version None)
Quarter: 2011Q2

REPORT INFORMATION
  Report Type: 
  Country: None (occurrence: None)
  Receive Date: 20110531
  Receipt Date: 20110518
  Transmission Date: 20111010
  Serious: Yes (Other)
  Sender: FDA-Public Use
  Company Number: US-UCBSA-033139

PATIENT

DRUGS (2)
  1. LEVETIRACETAM [Suspect]
     Dosage: UNKNOWN DOSE
  2. LEVETIRACETAM [Suspect]
     Dosage: UNKNOWN DOSE

REACTIONS (1)
  - TUBULOINTERSTITIAL NEPHRITIS [None]
